FAERS Safety Report 7935626-1 (Version None)
Quarter: 2011Q4

REPORT INFORMATION
  Report Type: 
  Country: None (occurrence: None)
  Receive Date: 20111118
  Receipt Date: 20111102
  Transmission Date: 20120403
  Serious: Yes (Death)
  Sender: FDA-Public Use
  Company Number: 2011110060

PATIENT
  Age: 86 Year
  Sex: Female

DRUGS (20)
  1. KONAKION [Concomitant]
  2. RAMIPRIL [Concomitant]
  3. JANUVIA [Concomitant]
  4. NOVALGIN (METAMIZOLE SODIUM) [Concomitant]
  5. FUROSEMIDE [Concomitant]
  6. CONCOR (BISOPROLOL FUARATE) [Concomitant]
  7. PREDNISONE [Suspect]
     Indication: CHRONIC OBSTRUCTIVE PULMONARY DISEASE
     Dosage: 10 MG (10 MG, 1 IN 1 D), ORAL
     Route: 048
  8. POTASSIUM CHLORIDE [Suspect]
     Indication: HYPOKALAEMIA
     Dosage: 2 DOSAGE FORMS (1  DOSAGE FORMS, 2 IN 1 D), ORAL
     Route: 048
     Dates: start: 20110826, end: 20110909
  9. MARCUMAR [Suspect]
     Indication: ATRIAL FLUTTER
     Dosage: 1 DOSAGE FORMS (1 DOSAGE FORMS, 1 IN D), ORAL
     Route: 048
     Dates: start: 20110501, end: 20110901
  10. MARCUMAR [Suspect]
     Indication: ATRIAL FIBRILLATION
     Dosage: 1 DOSAGE FORMS (1 DOSAGE FORMS, 1 IN D), ORAL
     Route: 048
     Dates: start: 20110501, end: 20110901
  11. HALDOL [Concomitant]
  12. SEROQUEL [Suspect]
     Dosage: WITH INCREASING DOSE TO 35 MG 0.25 MG (0.25 MG, 1 IN 1 D), ORAL 0.375 MG (0.375 MG, 1 IN 1 D), ORAL
     Route: 048
     Dates: end: 20110831
  13. SEROQUEL [Suspect]
     Dosage: WITH INCREASING DOSE TO 35 MG 0.25 MG (0.25 MG, 1 IN 1 D), ORAL 0.375 MG (0.375 MG, 1 IN 1 D), ORAL
     Route: 048
     Dates: start: 20110909, end: 20110909
  14. SEROQUEL [Suspect]
     Dosage: WITH INCREASING DOSE TO 35 MG 0.25 MG (0.25 MG, 1 IN 1 D), ORAL 0.375 MG (0.375 MG, 1 IN 1 D), ORAL
     Route: 048
     Dates: start: 20110905
  15. PARAGOL (PHENOLPHTHALEIN, PARRAFIN, LIQUID) [Concomitant]
  16. ACETAMINOPHEN [Concomitant]
  17. PROCTOGLYVENOL (LIDOCAINE HYDROCHLORIDE, TRIBENOSIDE) [Concomitant]
  18. TORSEMIDE [Suspect]
     Indication: CARDIAC FAILURE
     Dosage: 100-150 MG/D, ORAL
     Route: 048
     Dates: start: 20110809
  19. DIGOXIN [Suspect]
     Indication: CARDIAC FAILURE
     Dosage: WITH INCREASING DOSE 0.125 MG, 1 IN 1 D), ORAL
     Route: 048
     Dates: start: 20110810
  20. KALIUM HAUSEMANN EFFERVETTES (POTASSIUM BICARBONATE, POTASSIUM CITRATE [Suspect]
     Indication: HYPOKALAEMIA
     Dosage: 1 DOSAGE FORMS (1 DOSAGE FORMS, 1 IN 1 D), ORAL
     Route: 048
     Dates: end: 20110809

REACTIONS (20)
  - GASTRITIS EROSIVE [None]
  - THERAPEUTIC RESPONSE DECREASED [None]
  - DELIRIUM [None]
  - HYPOPHAGIA [None]
  - CARDIOVASCULAR DISORDER [None]
  - BLOOD ALKALINE PHOSPHATASE INCREASED [None]
  - HAEMATEMESIS [None]
  - HYPERBILIRUBINAEMIA [None]
  - CONSTIPATION [None]
  - DIABETES MELLITUS [None]
  - THROMBOCYTOPENIA [None]
  - GASTRIC ULCER [None]
  - PNEUMONIA [None]
  - HAEMORRHAGIC ANAEMIA [None]
  - HYDROPNEUMOTHORAX [None]
  - ANAL HAEMORRHAGE [None]
  - INTERNATIONAL NORMALISED RATIO INCREASED [None]
  - CHOLESTASIS [None]
  - GASTROINTESTINAL HAEMORRHAGE [None]
  - RENAL FAILURE ACUTE [None]
